FAERS Safety Report 12766880 (Version 2)
Quarter: 2016Q3

REPORT INFORMATION
  Report Type: Spontaneous
  Country: HU (occurrence: HU)
  Receive Date: 20160921
  Receipt Date: 20160928
  Transmission Date: 20161109
  Serious: Yes (Other)
  Sender: FDA-Public Use
  Company Number: HU-PFIZER INC-2016439177

PATIENT
  Age: 72 Year
  Sex: Female

DRUGS (10)
  1. MILURIT [Concomitant]
     Active Substance: ALLOPURINOL
     Dosage: UNK
  2. LYRICA [Suspect]
     Active Substance: PREGABALIN
     Indication: DIABETIC NEUROPATHY
     Dosage: 2X75 MG DURING TITRATION FIRST SHE TOOK ONLY 1 CAPS THEN SHE INCREASED IT TO 2 CAPS
     Route: 048
     Dates: start: 20160510
  3. THIOGAMMA [Concomitant]
     Active Substance: THIOCTIC ACID
     Dosage: UNK
  4. NEBIVOLOL. [Concomitant]
     Active Substance: NEBIVOLOL
     Dosage: UNK
  5. ATORVA [Concomitant]
     Dosage: UNK
  6. INSULIN [Concomitant]
     Active Substance: INSULIN NOS
     Dosage: UNK
  7. DALNESSA [Concomitant]
     Dosage: UNK
  8. MINIPRESS [Concomitant]
     Active Substance: PRAZOSIN HYDROCHLORIDE
     Dosage: UNK
  9. FRONTIN [Concomitant]
     Active Substance: ALPRAZOLAM
     Dosage: UNK
  10. SANVAL [Concomitant]
     Active Substance: ZOLPIDEM TARTRATE
     Dosage: UNK

REACTIONS (7)
  - Angiopathy [Recovered/Resolved]
  - Tension [Recovered/Resolved]
  - Cough [Recovered/Resolved]
  - Muscle spasms [Recovered/Resolved]
  - Choking [Recovered/Resolved]
  - Headache [Recovered/Resolved]
  - Energy increased [Recovered/Resolved]
